FAERS Safety Report 7968535-2 (Version None)
Quarter: 2011Q4

REPORT INFORMATION
  Report Type: 
  Country: None (occurrence: None)
  Receive Date: 20111209
  Receipt Date: 20111207
  Transmission Date: 20120403
  Serious: Yes (Life-Threatening)
  Sender: FDA-Public Use
  Company Number: AT-JNJFOC-20111203322

PATIENT
  Age: 77 Year
  Sex: Male

DRUGS (8)
  1. METHOTREXATE [Concomitant]
  2. TERIPARATIDE [Concomitant]
  3. PANTOPRAZOLE SODIUM [Concomitant]
  4. TRAMADOL HCL [Concomitant]
  5. FUROSEMIDE [Concomitant]
  6. HYDROCHLOROTHIAZIDE/CANDESARTAN CILEXETIL [Concomitant]
  7. SIMPONI [Suspect]
     Indication: RHEUMATOID ARTHRITIS
     Route: 058
     Dates: start: 20110201
  8. LORNOXICAM [Concomitant]

REACTIONS (1)
  - CEREBROVASCULAR ACCIDENT [None]
